FAERS Safety Report 4832774-X (Version None)
Quarter: 2005Q4

REPORT INFORMATION
  Report Type: 
  Country: None (occurrence: None)
  Receive Date: 20051117
  Receipt Date: 20051108
  Transmission Date: 20060501
  Serious: Yes (Hospitalization, Other)
  Sender: FDA-Public Use
  Company Number: DE_051117449

PATIENT
  Age: 58 Year
  Sex: Male

DRUGS (2)
  1. ZYPREXA [Suspect]
     Indication: BIPOLAR DISORDER
     Dosage: 10 MG DAY
     Dates: start: 20050101, end: 20051024
  2. AKINETON /AUS/ (BIPERIDEN HYDROCHLORIDE) [Concomitant]

REACTIONS (8)
  - ANURIA [None]
  - CHILLS [None]
  - INCORRECT DOSE ADMINISTERED [None]
  - MANIA [None]
  - NEUROLEPTIC MALIGNANT SYNDROME [None]
  - PLEUROTHOTONUS [None]
  - PNEUMONIA [None]
  - TREATMENT NONCOMPLIANCE [None]
